FAERS Safety Report 5660875-5 (Version None)
Quarter: 2008Q1

REPORT INFORMATION
  Report Type: 
  Country: None (occurrence: None)
  Receive Date: 20080311
  Receipt Date: 20080304
  Transmission Date: 20080703
  Serious: Yes (Hospitalization)
  Sender: FDA-Public Use
  Company Number: NL-SANOFI-SYNTHELABO-A01200802598

PATIENT
  Sex: Female
  Weight: 74 kg

DRUGS (3)
  1. ASCORBIC ACID [Concomitant]
     Route: 048
  2. AVASTIN [Concomitant]
     Route: 042
  3. ELOXATIN [Suspect]
     Indication: COLON CANCER METASTATIC
     Route: 041
     Dates: start: 20080125, end: 20080125

REACTIONS (1)
  - RHABDOMYOLYSIS [None]
